FAERS Safety Report 9819454 (Version 1)
Quarter: 2014Q1

REPORT INFORMATION
  Report Type: Spontaneous
  Country: US (occurrence: US)
  Receive Date: 20140115
  Receipt Date: 20140115
  Transmission Date: 20141002
  Serious: Yes (Other)
  Sender: FDA-Public Use
  Company Number: US-PFIZER INC-2014012150

PATIENT
  Age: 53 Year
  Sex: Female
  Weight: 45.81 kg

DRUGS (3)
  1. DEPO-ESTRADIOL [Suspect]
     Indication: HORMONE REPLACEMENT THERAPY
     Dosage: 150 MG, MONTHLY
     Route: 030
     Dates: start: 1981
  2. DIAZEPAM [Concomitant]
     Dosage: UNK
  3. PROZAC [Concomitant]
     Dosage: UNK

REACTIONS (5)
  - Epiglottic carcinoma [Unknown]
  - Post procedural complication [Unknown]
  - Ear disorder [Unknown]
  - Crying [Unknown]
  - Irritability [Unknown]
